FAERS Safety Report 7132361-7 (Version None)
Quarter: 2010Q4

REPORT INFORMATION
  Report Type: 
  Country: None (occurrence: None)
  Receive Date: 20101129
  Receipt Date: 20101129
  Transmission Date: 20110411
  Serious: Yes (Hospitalization)
  Sender: FDA-Public Use
  Company Number: None

PATIENT
  Age: 77 Year
  Sex: Male

DRUGS (1)
  1. FENTANYL [Suspect]
     Indication: ANAESTHESIA
     Dosage: 200 MCG ONCE IV
     Route: 042
     Dates: start: 20101109, end: 20101109

REACTIONS (1)
  - BRADYCARDIA [None]
